FAERS Safety Report 25388289 (Version 1)
Quarter: 2025Q2

REPORT INFORMATION
  Report Type: Report from Study
  Country: CA (occurrence: CA)
  Receive Date: 20250603
  Receipt Date: 20250603
  Transmission Date: 20250716
  Serious: Yes (Hospitalization)
  Sender: ABBVIE
  Company Number: CA-ABBVIE-6303575

PATIENT
  Sex: Male

DRUGS (2)
  1. VENCLEXTA [Suspect]
     Active Substance: VENETOCLAX
     Indication: Chronic lymphocytic leukaemia
     Dosage: 100 MG
     Route: 048
     Dates: start: 20240318
  2. OBINUTUZUMAB [Concomitant]
     Active Substance: OBINUTUZUMAB
     Indication: Product used for unknown indication

REACTIONS (10)
  - Oral candidiasis [Recovered/Resolved]
  - Disability [Unknown]
  - Acne [Recovered/Resolved]
  - Rash [Recovered/Resolved]
  - Feeding disorder [Unknown]
  - Red blood cell count decreased [Unknown]
  - Investigation abnormal [Unknown]
  - Oral fungal infection [Unknown]
  - Oral pain [Unknown]
  - Speech disorder [Unknown]

NARRATIVE: CASE EVENT DATE: 20240412
